FAERS Safety Report 13485834 (Version 3)
Quarter: 2017Q4

REPORT INFORMATION
  Report Type: Report from Study
  Country: CA (occurrence: CA)
  Receive Date: 20170426
  Receipt Date: 20171102
  Transmission Date: 20180320
  Serious: Yes (Other)
  Sender: FDA-Public Use
  Company Number: CA-GLAXOSMITHKLINE-CA2016GSK089923

PATIENT
  Age: 55 Year
  Sex: Female

DRUGS (9)
  1. VENTOLIN [Concomitant]
     Active Substance: ALBUTEROL SULFATE
  2. ZENHALE [Concomitant]
     Active Substance: FORMOTEROL FUMARATE\MOMETASONE FUROATE
     Dosage: 2 PUFF(S), BID (MORNING AND NIGHT)
  3. MEPOLIZUMAB [Suspect]
     Active Substance: MEPOLIZUMAB
     Dosage: UNK
  4. ASMANEX [Concomitant]
     Active Substance: MOMETASONE FUROATE
     Dosage: 1 PUFF(S), 1D (AT BEDTIME)
  5. MEPOLIZUMAB [Suspect]
     Active Substance: MEPOLIZUMAB
     Indication: ASTHMA
     Dosage: 100 MG, Z
     Route: 058
     Dates: start: 20160503
  6. MEPOLIZUMAB [Suspect]
     Active Substance: MEPOLIZUMAB
     Dosage: 100 MG, Z
     Route: 042
  7. SINGULAIR [Concomitant]
     Active Substance: MONTELUKAST SODIUM
     Dosage: 10 MG, QID (BEDTIME)
  8. MEPOLIZUMAB [Suspect]
     Active Substance: MEPOLIZUMAB
     Dosage: 100 MG, Z
     Route: 042
     Dates: start: 20170516
  9. NASONEX [Concomitant]
     Active Substance: MOMETASONE FUROATE
     Dosage: 2 UNK, BID (MORNING AND NIGHT)

REACTIONS (22)
  - Dyspnoea [Not Recovered/Not Resolved]
  - Feeling hot [Recovering/Resolving]
  - Pruritus generalised [Unknown]
  - Leukocytosis [Unknown]
  - Sinusitis [Unknown]
  - Influenza [Recovering/Resolving]
  - Sputum discoloured [Recovering/Resolving]
  - Bronchial obstruction [Unknown]
  - Ear congestion [Unknown]
  - Nasopharyngitis [Recovered/Resolved]
  - Superinfection bacterial [Unknown]
  - Eosinophilia [Not Recovered/Not Resolved]
  - Pain [Recovering/Resolving]
  - Wheezing [Unknown]
  - Asthma [Unknown]
  - Spirometry abnormal [Recovering/Resolving]
  - Pruritus [Unknown]
  - Lung infection [Unknown]
  - Ill-defined disorder [Unknown]
  - Cough [Unknown]
  - Secretion discharge [Unknown]
  - Rhinitis [Unknown]

NARRATIVE: CASE EVENT DATE: 201606
